FAERS Safety Report 20723865 (Version 1)
Quarter: 2022Q2

REPORT INFORMATION
  Report Type: Report from Study
  Country: AU (occurrence: AU)
  Receive Date: 20220419
  Receipt Date: 20220419
  Transmission Date: 20220721
  Serious: Yes (Other)
  Sender: FDA-Public Use
  Company Number: AU-SUN PHARMACEUTICAL INDUSTRIES LTD-2022R1-333277

PATIENT
  Sex: Female

DRUGS (1)
  1. SOTALOL [Suspect]
     Active Substance: SOTALOL
     Indication: Tachycardia foetal
     Dosage: 80 MILLIGRAM, TID
     Route: 065

REACTIONS (4)
  - Exposure during pregnancy [Unknown]
  - Lethargy [Unknown]
  - Nausea [Unknown]
  - Live birth [Unknown]
